FAERS Safety Report 7763336-2 (Version None)
Quarter: 2011Q3

REPORT INFORMATION
  Report Type: 
  Country: None (occurrence: None)
  Receive Date: 20110920
  Receipt Date: 20110912
  Transmission Date: 20111222
  Serious: Yes (Hospitalization)
  Sender: FDA-Public Use
  Company Number: JP-B.I. PHARMACEUTICALS,INC./RIDGEFIELD-2011-BP-20798NB

PATIENT
  Age: 86 Year
  Sex: Male

DRUGS (6)
  1. CLARITHROMYCIN [Concomitant]
     Route: 065
  2. PRADAXA [Suspect]
     Indication: ATRIAL FIBRILLATION
     Dosage: 220 MG
     Route: 048
     Dates: start: 20110702
  3. PRADAXA [Suspect]
     Dosage: 150 MG
     Route: 048
     Dates: start: 20110802
  4. ZOLPIDEM [Concomitant]
     Route: 065
  5. SPIRIVA [Concomitant]
     Route: 065
  6. LEVOTHYROXINE SODIUM [Concomitant]
     Route: 065

REACTIONS (2)
  - EPISTAXIS [None]
  - CEREBRAL INFARCTION [None]
